FAERS Safety Report 8549975-X (Version None)
Quarter: 2012Q3

REPORT INFORMATION
  Report Type: 
  Country: None (occurrence: None)
  Receive Date: 20120730
  Receipt Date: 20120727
  Transmission Date: 20120928
  Serious: Yes (Hospitalization)
  Sender: FDA-Public Use
  Company Number: JP-ABBOTT-12P-087-0948536-00

PATIENT
  Sex: Female

DRUGS (17)
  1. CHIKUJOUNTANTO [Suspect]
     Indication: ASTHMA
  2. MEDICON [Suspect]
     Indication: BRONCHITIS
     Route: 048
     Dates: start: 20101105, end: 20101120
  3. SYMBICORT [Suspect]
     Indication: ASTHMA
  4. ZITHROMAX [Suspect]
     Indication: BRONCHITIS
     Route: 048
     Dates: start: 20101119, end: 20101122
  5. SEIHAITO [Concomitant]
     Indication: BRONCHITIS
     Route: 048
     Dates: start: 20101109, end: 20101114
  6. CLARITHROMYCIN [Suspect]
     Indication: BRONCHITIS
     Route: 048
     Dates: start: 20101109, end: 20101112
  7. SYMBICORT [Suspect]
     Indication: BRONCHITIS
     Route: 055
     Dates: start: 20101119, end: 20101126
  8. CLARITIN [Suspect]
     Indication: BRONCHITIS
     Route: 048
     Dates: start: 20101105, end: 20101124
  9. EPPIKAJUTSUTO [Suspect]
     Indication: BRONCHITIS
     Route: 048
     Dates: start: 20101113, end: 20101120
  10. ACETAMINOPHEN [Suspect]
     Indication: ASTHMA
  11. DIHYDROCODEINE W/DIPROPHYLLINE [Suspect]
     Indication: BRONCHITIS
     Route: 048
     Dates: start: 20101119, end: 20101123
  12. BAKUMONDOTO [Suspect]
     Indication: BRONCHITIS
     Route: 048
     Dates: start: 20101105, end: 20101109
  13. MUCODYNE [Suspect]
     Indication: BRONCHITIS
     Route: 048
     Dates: start: 20101109, end: 20101120
  14. ACETAMINOPHEN [Suspect]
     Indication: BRONCHITIS
     Route: 048
     Dates: start: 20101119
  15. EPPIKAJUTSUTO [Suspect]
     Indication: ASTHMA
  16. CHIKUJOUNTANTO [Suspect]
     Indication: BRONCHITIS
     Route: 048
     Dates: start: 20101113, end: 20101120
  17. SYMBICORT [Suspect]
     Indication: COUGH

REACTIONS (3)
  - RASH [None]
  - PYREXIA [None]
  - DRUG ERUPTION [None]
